FAERS Safety Report 6539053-3 (Version None)
Quarter: 2010Q1

REPORT INFORMATION
  Report Type: 
  Country: None (occurrence: None)
  Receive Date: 20100115
  Receipt Date: 20100106
  Transmission Date: 20100710
  Serious: Yes (Other)
  Sender: FDA-Public Use
  Company Number: PHHY2010US00843

PATIENT
  Sex: Female

DRUGS (3)
  1. RECLAST [Suspect]
     Indication: OSTEOPENIA
     Dosage: 5 MG, UNK
     Route: 042
     Dates: start: 20091231
  2. METOPROLOL [Concomitant]
     Indication: SUPRAVENTRICULAR TACHYCARDIA
     Dosage: 25 MG DAILY
  3. ARIMIDEX [Concomitant]
     Indication: BREAST CANCER

REACTIONS (7)
  - ATRIAL TACHYCARDIA [None]
  - CHILLS [None]
  - EYELID PTOSIS [None]
  - IRITIS [None]
  - PAIN [None]
  - PYREXIA [None]
  - RASH [None]
